FAERS Safety Report 10758201 (Version 1)
Quarter: 2015Q1

REPORT INFORMATION
  Report Type: Spontaneous
  Country: US (occurrence: None)
  Receive Date: 20150202
  Receipt Date: 20150202
  Transmission Date: 20150721
  Serious: No
  Sender: FDA-Public Use
  Company Number: None

PATIENT
  Age: 77 Year
  Sex: Female
  Weight: 57.15 kg

DRUGS (8)
  1. HIGH POTENCY MULTI-VIT [Concomitant]
  2. PRAVASTATIN [Concomitant]
     Active Substance: PRAVASTATIN\PRAVASTATIN SODIUM
  3. SYNTHROID [Concomitant]
     Active Substance: LEVOTHYROXINE SODIUM
  4. SOTOLOL [Concomitant]
     Active Substance: SOTALOL
  5. UBIQUENOL CO Q-10 [Concomitant]
  6. SYMBICORT [Suspect]
     Active Substance: BUDESONIDE\FORMOTEROL FUMARATE DIHYDRATE
     Indication: LUNG DISORDER
     Dosage: 80/4.5 2 PUFFS TWICE DAILY MOUTH
     Route: 048
     Dates: start: 20130405, end: 20141122
  7. 81 MG ASPIRIN [Concomitant]
  8. AIRBORNE IMMUNE SUPPORT [Concomitant]

REACTIONS (3)
  - Rash [None]
  - Paraesthesia [None]
  - Skin exfoliation [None]

NARRATIVE: CASE EVENT DATE: 20141110
